FAERS Safety Report 7052896-5 (Version None)
Quarter: 2010Q4

REPORT INFORMATION
  Report Type: 
  Country: None (occurrence: None)
  Receive Date: 20101020
  Receipt Date: 20101011
  Transmission Date: 20110411
  Serious: Yes (Hospitalization)
  Sender: FDA-Public Use
  Company Number: DE-BIOGENIDEC-2010BI035118

PATIENT
  Age: 40 Year
  Sex: Female
  Weight: 82 kg

DRUGS (1)
  1. AVONEX [Suspect]
     Indication: RELAPSING-REMITTING MULTIPLE SCLEROSIS
     Dates: start: 20090511

REACTIONS (3)
  - CHOLELITHIASIS [None]
  - HEADACHE [None]
  - MYALGIA [None]
